FAERS Safety Report 5693860-8 (Version None)
Quarter: 2008Q2

REPORT INFORMATION
  Report Type: 
  Country: None (occurrence: None)
  Receive Date: 20080403
  Receipt Date: 20080328
  Transmission Date: 20081010
  Serious: Yes (Other)
  Sender: FDA-Public Use
  Company Number: GB-PFIZER INC-2007085587

PATIENT
  Sex: Male

DRUGS (2)
  1. SERTRALINE [Suspect]
     Indication: OBSESSIVE-COMPULSIVE DISORDER
     Route: 048
  2. SERTRALINE [Suspect]
     Indication: ANXIETY

REACTIONS (2)
  - DRUG DEPENDENCE [None]
  - OBSESSIVE-COMPULSIVE DISORDER [None]
